FAERS Safety Report 7737614-7 (Version None)
Quarter: 2011Q3

REPORT INFORMATION
  Report Type: 
  Country: None (occurrence: None)
  Receive Date: 20110908
  Receipt Date: 20110828
  Transmission Date: 20111222
  Serious: Yes (Hospitalization, Other)
  Sender: FDA-Public Use
  Company Number: US-ELI_LILLY_AND_COMPANY-US201108008931

PATIENT
  Age: 44 Year
  Sex: Female

DRUGS (4)
  1. POTASSIUM [Concomitant]
  2. RITALIN [Concomitant]
     Indication: DEPRESSION
  3. DIURETICS [Concomitant]
  4. HUMATROPE [Suspect]
     Indication: GROWTH HORMONE DEFICIENCY
     Dosage: 0.3 MG, QD
     Dates: start: 19980101

REACTIONS (10)
  - ADRENOCORTICAL INSUFFICIENCY ACUTE [None]
  - PAIN [None]
  - ALOPECIA [None]
  - ARTHRALGIA [None]
  - DRUG ABUSE [None]
  - NARCOLEPSY [None]
  - ABNORMAL BEHAVIOUR [None]
  - SURGERY [None]
  - NERVE INJURY [None]
  - BLOOD CORTISOL DECREASED [None]
